FAERS Safety Report 9077716 (Version 1)
Quarter: 2013Q1

REPORT INFORMATION
  Report Type: Spontaneous
  Country: US (occurrence: US)
  Receive Date: 20130130
  Receipt Date: 20130130
  Transmission Date: 20140127
  Serious: No
  Sender: FDA-Public Use
  Company Number: US-ABBOTT-12P-163-0952159-00

PATIENT
  Age: 32 None
  Sex: Male
  Weight: 83.99 kg

DRUGS (8)
  1. HUMIRA 40 MG/0.8 ML PEN [Suspect]
     Indication: CROHN^S DISEASE
     Dates: end: 2010
  2. HUMIRA 40 MG/0.8 ML PEN [Suspect]
     Dates: start: 2010
  3. HUMIRA 40 MG/0.8 ML PEN [Suspect]
     Dates: end: 2011
  4. HUMIRA 40 MG/0.8 ML PEN [Suspect]
     Dates: start: 2011
  5. CLARITIN [Concomitant]
     Indication: SEASONAL ALLERGY
  6. FLONASE [Concomitant]
     Indication: SEASONAL ALLERGY
  7. BENADRYL [Concomitant]
     Indication: SEASONAL ALLERGY
     Dosage: AT BEDTIME
  8. BENADRYL [Concomitant]
     Indication: INSOMNIA

REACTIONS (5)
  - Poor quality drug administered [Recovered/Resolved]
  - Diarrhoea [Not Recovered/Not Resolved]
  - Diarrhoea [Not Recovered/Not Resolved]
  - Crohn^s disease [Recovered/Resolved]
  - Drug ineffective [Recovered/Resolved]
